FAERS Safety Report 9903627 (Version 1)
Quarter: 2014Q1

REPORT INFORMATION
  Report Type: Report from Study
  Country: US (occurrence: US)
  Receive Date: 20140217
  Receipt Date: 20140217
  Transmission Date: 20141002
  Serious: Yes (Other)
  Sender: FDA-Public Use
  Company Number: US-BAXTER-2014BAX007920

PATIENT
  Sex: Female

DRUGS (6)
  1. CYCLOPHOSPHAMIDE FOR INJECTION, USP [Suspect]
     Indication: HER-2 POSITIVE BREAST CANCER
     Dosage: DAY 1 FOR 4 CYCLES
     Route: 065
  2. FLUOROURACIL [Suspect]
     Indication: HER-2 POSITIVE BREAST CANCER
     Dosage: DAY 1 FOR 4 CYCLES
     Route: 065
  3. EPIRUBICIN [Suspect]
     Indication: HER-2 POSITIVE BREAST CANCER
     Dosage: DAY 1 FOR 4 CYCLES
     Route: 065
  4. PACLITAXEL [Suspect]
     Indication: HER-2 POSITIVE BREAST CANCER
     Route: 065
  5. TRASTUZUMAB [Suspect]
     Indication: HER-2 POSITIVE BREAST CANCER
     Route: 065
  6. TRASTUZUMAB [Suspect]
     Dosage: ON DAYS 1,8, AND 15 OF A 21 DAY CYCLE
     Route: 065

REACTIONS (1)
  - Dehydration [Unknown]
